FAERS Safety Report 12889923 (Version 1)
Quarter: 2016Q4

REPORT INFORMATION
  Report Type: Spontaneous
  Country: US (occurrence: US)
  Receive Date: 20161027
  Receipt Date: 20161027
  Transmission Date: 20170207
  Serious: No
  Sender: FDA-Public Use
  Company Number: US-SAGENTPRD-2016-US-000037

PATIENT
  Age: 71 Year
  Sex: Male

DRUGS (1)
  1. PROPOFOL INJECTABLE EMULSION, USP [Suspect]
     Active Substance: PROPOFOL

REACTIONS (3)
  - Confusional state [Unknown]
  - Amnesia [Unknown]
  - Memory impairment [Unknown]
